FAERS Safety Report 5739159-2 (Version None)
Quarter: 2008Q2

REPORT INFORMATION
  Report Type: 
  Country: None (occurrence: None)
  Receive Date: 20080515
  Receipt Date: 20080331
  Transmission Date: 20081010
  Serious: Yes (Death, Life-Threatening, Hospitalization)
  Sender: FDA-Public Use
  Company Number: B0512426A

PATIENT
  Age: 87 Year
  Sex: Female

DRUGS (12)
  1. ARIXTRA [Suspect]
     Indication: PULMONARY EMBOLISM
     Dosage: 7.5MG PER DAY
     Route: 058
     Dates: start: 20080108, end: 20080110
  2. PLAVIX [Suspect]
     Dosage: 75MG PER DAY
     Route: 048
     Dates: start: 20071231, end: 20080111
  3. ASPIRIN [Suspect]
     Dosage: 75MG PER DAY
     Route: 048
     Dates: start: 20080108, end: 20080111
  4. PREVISCAN [Suspect]
     Dosage: 20MG PER DAY
     Route: 048
     Dates: start: 20080108, end: 20080111
  5. EFFEXOR [Suspect]
     Route: 048
     Dates: end: 20080112
  6. AMLOR [Suspect]
     Dosage: 5MG PER DAY
     Route: 048
     Dates: end: 20080112
  7. KERLONE [Suspect]
     Dosage: 10MG PER DAY
     Route: 048
     Dates: end: 20080112
  8. SPIRONOLACTONE [Suspect]
     Dosage: 50MG PER DAY
     Route: 065
     Dates: end: 20080112
  9. TRINIPATCH [Suspect]
     Dosage: 10MGD PER DAY
     Route: 062
     Dates: end: 20080112
  10. TAHOR [Suspect]
     Dosage: 40MG PER DAY
     Route: 048
  11. MOPRAL [Suspect]
     Dosage: 20MG PER DAY
     Route: 048
  12. LASILIX [Concomitant]

REACTIONS (10)
  - AKINESIA [None]
  - ANAEMIA [None]
  - CORONARY ARTERY OCCLUSION [None]
  - FALL [None]
  - INTERNATIONAL NORMALISED RATIO INCREASED [None]
  - LEFT VENTRICULAR DYSFUNCTION [None]
  - MUSCLE HAEMORRHAGE [None]
  - TROPONIN INCREASED [None]
  - VENTRICULAR FIBRILLATION [None]
  - VENTRICULAR TACHYCARDIA [None]
